FAERS Safety Report 14012091 (Version 1)
Quarter: 2017Q3

REPORT INFORMATION
  Report Type: Report from Study
  Country: NL (occurrence: NL)
  Receive Date: 20170926
  Receipt Date: 20170926
  Transmission Date: 20171128
  Serious: Yes (Death)
  Sender: FDA-Public Use
  Company Number: PHHY2017NL141352

PATIENT
  Sex: Male

DRUGS (4)
  1. ACLASTA [Suspect]
     Active Substance: ZOLEDRONIC ACID
     Dosage: 5 MG, Q12MO (EVERY 52 WEEKS)
     Route: 042
     Dates: start: 20160926
  2. ACLASTA [Suspect]
     Active Substance: ZOLEDRONIC ACID
     Indication: OSTEOPOROSIS
     Dosage: 5 MG, Q12MO (EVERY 52 WEEKS)
     Route: 042
  3. ACLASTA [Suspect]
     Active Substance: ZOLEDRONIC ACID
     Dosage: 5 MG, Q12MO (EVERY 52 WEEKS)
     Route: 042
     Dates: start: 20130709
  4. ACLASTA [Suspect]
     Active Substance: ZOLEDRONIC ACID
     Dosage: 5 MG, Q12MO (EVERY 52 WEEKS)
     Route: 042
     Dates: start: 20150717

REACTIONS (2)
  - Cardiac arrest [Fatal]
  - Malaise [Fatal]
